FAERS Safety Report 12388819 (Version 3)
Quarter: 2016Q3

REPORT INFORMATION
  Report Type: Report from Study
  Country: US (occurrence: US)
  Receive Date: 20160520
  Receipt Date: 20160725
  Transmission Date: 20161109
  Serious: Yes (Life-Threatening, Hospitalization, Other)
  Sender: FDA-Public Use
  Company Number: US-JNJFOC-20160508912

PATIENT
  Age: 58 Year
  Sex: Male

DRUGS (2)
  1. ACETAMINOPHEN. [Suspect]
     Active Substance: ACETAMINOPHEN
     Route: 065
  2. ACETAMINOPHEN. [Suspect]
     Active Substance: ACETAMINOPHEN
     Indication: PRODUCT USED FOR UNKNOWN INDICATION
     Route: 065
     Dates: start: 20160508

REACTIONS (4)
  - Transaminases increased [Recovered/Resolved]
  - Overdose [Recovered/Resolved]
  - Unresponsive to stimuli [Recovered/Resolved]
  - Endotracheal intubation [Recovered/Resolved]

NARRATIVE: CASE EVENT DATE: 20160508
